FAERS Safety Report 7912103-5 (Version None)
Quarter: 2011Q4

REPORT INFORMATION
  Report Type: 
  Country: None (occurrence: None)
  Receive Date: 20111114
  Receipt Date: 20111031
  Transmission Date: 20120403
  Serious: Yes (Other)
  Sender: FDA-Public Use
  Company Number: BR-ROCHE-1010435

PATIENT
  Sex: Female

DRUGS (3)
  1. SINGULAIR [Concomitant]
     Indication: HYPERSENSITIVITY
     Route: 048
  2. XOLAIR [Suspect]
     Indication: ASTHMA
     Dates: start: 20110201
  3. BUDESONIDE [Suspect]
     Indication: ASTHMA
     Dosage: DRY POWDER AEROSOL
     Dates: start: 20110201

REACTIONS (4)
  - ASTHMA [None]
  - TOOTHACHE [None]
  - MIGRAINE [None]
  - HEADACHE [None]
